FAERS Safety Report 23530586 (Version 4)
Quarter: 2024Q3

REPORT INFORMATION
  Report Type: Spontaneous
  Country: PK (occurrence: PK)
  Receive Date: 20240216
  Receipt Date: 20240927
  Transmission Date: 20241017
  Serious: Yes (Hospitalization)
  Sender: AMGEN
  Company Number: PK-PFIZER INC-2021635876

PATIENT
  Age: 43 Year
  Sex: Male

DRUGS (15)
  1. ENBREL [Suspect]
     Active Substance: ETANERCEPT
     Indication: Rheumatoid arthritis
     Dosage: 50 MG, WEEKLY
     Route: 058
  2. ENBREL [Suspect]
     Active Substance: ETANERCEPT
     Dosage: UNK
     Route: 065
     Dates: start: 20210604
  3. ENBREL [Suspect]
     Active Substance: ETANERCEPT
     Dosage: 50 MG, EVERY TWO WEEKS
     Route: 058
     Dates: start: 20211030
  4. ENBREL [Suspect]
     Active Substance: ETANERCEPT
     Dosage: 50 MG, EVERY TWO WEEKS
     Route: 058
     Dates: start: 20211130
  5. LEFLUNOMIDE [Concomitant]
     Active Substance: LEFLUNOMIDE
     Dosage: 20 MG, DAILY
  6. LEFLUNOMIDE [Concomitant]
     Active Substance: LEFLUNOMIDE
     Dosage: 10 MG, DAILY
  7. HYDROXYCHLOROQUINE SULFATE [Concomitant]
     Active Substance: HYDROXYCHLOROQUINE SULFATE
     Dosage: 200 MG, DAILY
  8. HYDROXYCHLOROQUINE SULFATE [Concomitant]
     Active Substance: HYDROXYCHLOROQUINE SULFATE
     Dosage: 400 MG, DAILY
  9. FOLIC ACID [Concomitant]
     Active Substance: FOLIC ACID
     Dosage: 5 MG, 2X/WEEK
  10. Sunny d [Concomitant]
     Dosage: 200,000 CAP, 1 X CAPSULES , ONCE IN TWO MONTHS
  11. CELBEXX [Concomitant]
     Dosage: 200 MG, DAILY
  12. SYSTANE (HYPROMELLOSE 2910 (4000 MPA.S)) [Concomitant]
     Active Substance: HYPROMELLOSE 2910 (4000 MPA.S)
     Dosage: UNK, 4X/DAY
     Route: 061
  13. ROVISTA [Concomitant]
     Dosage: 5 MG, 0 + 0 + 1 + 0, 1 TAB IN EVENING
  14. EVION [Concomitant]
     Active Substance: .ALPHA.-TOCOPHEROL ACETATE
     Dosage: 400 MG, 1 X CAPSULES, ONCE A DAY
  15. FOLIC ACID [Concomitant]
     Active Substance: FOLIC ACID
     Dosage: 5 MG, 1X/DAY (OFF ON SAT SUN)

REACTIONS (29)
  - Myocardial infarction [Unknown]
  - Myocardial ischaemia [Unknown]
  - Alanine aminotransferase increased [Recovering/Resolving]
  - Coronary artery disease [Unknown]
  - Arthralgia [Recovering/Resolving]
  - Aspartate aminotransferase increased [Unknown]
  - Dyslipidaemia [Unknown]
  - Blood pressure increased [Recovered/Resolved]
  - Hepatitis B surface antibody positive [Unknown]
  - Joint swelling [Recovering/Resolving]
  - Musculoskeletal stiffness [Recovering/Resolving]
  - Bilirubin urine [Recovering/Resolving]
  - Infection [Recovering/Resolving]
  - Rash [Recovering/Resolving]
  - Haemoglobin increased [Recovering/Resolving]
  - Abdominal pain upper [Unknown]
  - Diarrhoea [Unknown]
  - Pain [Unknown]
  - Low density lipoprotein increased [Recovering/Resolving]
  - Pain in extremity [Recovered/Resolved]
  - Peripheral swelling [Recovered/Resolved]
  - Chest discomfort [Unknown]
  - Hypertransaminasaemia [Unknown]
  - Hepatic steatosis [Unknown]
  - Off label use [Unknown]
  - Gamma-glutamyltransferase increased [Unknown]
  - Alopecia areata [Unknown]
  - Condition aggravated [Unknown]
  - High density lipoprotein decreased [Unknown]

NARRATIVE: CASE EVENT DATE: 20210523
